FAERS Safety Report 8569632 (Version 2)
Quarter: 2019Q2

REPORT INFORMATION
  Report Type: Spontaneous
  Country: DE (occurrence: DE)
  Receive Date: 20120518
  Receipt Date: 20190627
  Transmission Date: 20190711
  Serious: Yes (Death, Hospitalization, Congenital Anomaly, Other)
  Sender: FDA-Public Use
  Company Number: DE-JNJFOC-20120513686

PATIENT
  Sex: Female
  Weight: 2.97 kg

DRUGS (10)
  1. EMSER SALT [Concomitant]
     Indication: SELF-MEDICATION
     Dosage: 13.1-14 GESTATIONAL WEEK
     Route: 064
     Dates: start: 20101220, end: 20101226
  2. KADEFUNGIN [Concomitant]
     Active Substance: CLOTRIMAZOLE
     Indication: FUNGAL INFECTION
     Dosage: 2ND TRIMESTER
     Route: 064
  3. UTROGEST [Concomitant]
     Active Substance: PROGESTERONE
     Indication: POLYCYSTIC OVARIES
     Dosage: 0-8 GESTATIONAL WEEK, DAILY DOSE:100 MG/D
     Route: 064
     Dates: start: 201010, end: 20101114
  4. FOLIO FORTE [Concomitant]
     Active Substance: FOLIC ACID\VITAMINS
     Indication: PROPHYLAXIS OF NEURAL TUBE DEFECT
     Dosage: 0-28.1 GESTATIONAL WEEK, DAILY DOSE: 0.8 MG/D
     Route: 064
     Dates: start: 20100919, end: 20110404
  5. EBENOL [Concomitant]
     Indication: HYPERSENSITIVITY
     Dosage: 0-8.3 GESTATIONAL WEEK
     Route: 064
     Dates: start: 20101114, end: 20101117
  6. APSOMOL [Concomitant]
     Active Substance: ALBUTEROL
     Indication: BRONCHITIS
     Dosage: 13.1-13.6 GESTATIONAL WEEK
     Route: 064
     Dates: start: 20101220, end: 20101225
  7. L-THYROXIN [Concomitant]
     Active Substance: LEVOTHYROXINE SODIUM
     Indication: HYPOTHYROIDISM
     Dosage: 0-40 GESTATIONAL WEEK, DAILY DOSE: 100 ?G
     Route: 064
     Dates: start: 201010, end: 20110626
  8. CETIRIZINE HYDROCHLORIDE. [Suspect]
     Active Substance: CETIRIZINE HYDROCHLORIDE
     Indication: DERMATITIS ALLERGIC
     Route: 064
     Dates: start: 201010, end: 201106
  9. METFORMIN [Suspect]
     Active Substance: METFORMIN HYDROCHLORIDE
     Indication: GLUCOSE TOLERANCE IMPAIRED
     Dosage: 1000, 0-7 GESTATIONAL WEEK
     Route: 064
     Dates: start: 201009, end: 201011
  10. IODINE. [Concomitant]
     Active Substance: IODINE
     Indication: PROPHYLAXIS OF NEURAL TUBE DEFECT
     Dosage: 0.8 MG, 0-28.1 GESTATIONAL WEEK
     Route: 064
     Dates: start: 201010, end: 20110404

REACTIONS (5)
  - Turner^s syndrome [Not Recovered/Not Resolved]
  - Low birth weight baby [Unknown]
  - Hypoplastic left heart syndrome [Fatal]
  - Necrotising colitis [Unknown]
  - Foetal exposure during pregnancy [Unknown]

NARRATIVE: CASE EVENT DATE: 201010
